FAERS Safety Report 4514158-7 (Version None)
Quarter: 2004Q4

REPORT INFORMATION
  Report Type: 
  Country: None (occurrence: None)
  Receive Date: 20041124
  Receipt Date: 20041115
  Transmission Date: 20050328
  Serious: Yes (Other)
  Sender: FDA-Public Use
  Company Number: CH-2004-035118

PATIENT
  Age: 30 Year
  Sex: Female

DRUGS (2)
  1. MIRENA [Suspect]
     Indication: CONTRACEPTION
     Dosage: 20 UG/DAY, CONT, INTRA-UTERINE
     Route: 015
  2. IMIGRAN (SUMATRIPTAN SUCCINATE) [Concomitant]

REACTIONS (6)
  - FOLATE DEFICIENCY [None]
  - GLOMERULONEPHRITIS PROLIFERATIVE [None]
  - HYPERTENSION [None]
  - IRON DEFICIENCY [None]
  - NORMOCHROMIC NORMOCYTIC ANAEMIA [None]
  - RENAL FAILURE [None]
